FAERS Safety Report 7251290-1 (Version None)
Quarter: 2011Q1

REPORT INFORMATION
  Report Type: 
  Country: None (occurrence: None)
  Receive Date: 20110128
  Receipt Date: 20110121
  Transmission Date: 20110831
  Serious: Yes (Hospitalization)
  Sender: FDA-Public Use
  Company Number: US-GENZYME-FABR-1001712

PATIENT
  Sex: Male
  Weight: 55 kg

DRUGS (12)
  1. FABRAZYME [Suspect]
     Dosage: 40 MG, Q2W
     Route: 042
     Dates: start: 20100902, end: 20100915
  2. FABRAZYME [Suspect]
     Dosage: 55 MG, Q2W
     Route: 042
     Dates: start: 20100226, end: 20100512
  3. FABRAZYME [Suspect]
     Dosage: 35 MG, Q2W
     Route: 042
     Dates: start: 20100526, end: 20100609
  4. FABRAZYME [Suspect]
     Dosage: 35 MG, Q2W
     Route: 042
     Dates: start: 20100929, end: 20101014
  5. FABRAZYME [Suspect]
     Dosage: 25 MG, Q2W
     Route: 042
     Dates: start: 20090708, end: 20090902
  6. FABRAZYME [Suspect]
     Indication: FABRY'S DISEASE
     Dosage: 50 MG, Q2W
     Route: 042
     Dates: start: 20101027
  7. FABRAZYME [Suspect]
     Dosage: 30 MG, Q2W
     Route: 042
     Dates: start: 20100817, end: 20100817
  8. FABRAZYME [Suspect]
     Dosage: 50 MG, Q2W
     Route: 042
     Dates: start: 20090916, end: 20090916
  9. FABRAZYME [Suspect]
     Dosage: 35 MG, Q2W
     Route: 042
     Dates: start: 20100721, end: 20100804
  10. FABRAZYME [Suspect]
     Dosage: 55 MG, Q2W
     Route: 042
     Dates: start: 20060821, end: 20090624
  11. FABRAZYME [Suspect]
     Dosage: 16.5 MG, Q2W
     Route: 042
     Dates: start: 20090930, end: 20100217
  12. FABRAZYME [Suspect]
     Dosage: 20 MG, Q2W
     Route: 042
     Dates: start: 20100623, end: 20100623

REACTIONS (3)
  - ARTERIOSCLEROSIS CORONARY ARTERY [None]
  - CARDIOMYOPATHY [None]
  - ARRHYTHMIA [None]
